FAERS Safety Report 8313819-1 (Version None)
Quarter: 2012Q2

REPORT INFORMATION
  Report Type: 
  Country: None (occurrence: None)
  Receive Date: 20120426
  Receipt Date: 20120416
  Transmission Date: 20120825
  Serious: Yes (Hospitalization)
  Sender: FDA-Public Use
  Company Number: JP-CELGENEUS-087-CCAZA-11090656

PATIENT
  Age: 79 Year
  Sex: Male

DRUGS (15)
  1. OMEPRAZOLE [Concomitant]
     Route: 065
  2. ASPIRIN [Concomitant]
     Route: 065
  3. LEVOTHYROXINE SODIUM HYDRATE [Concomitant]
     Route: 065
     Dates: start: 20110728
  4. AZACITIDINE [Suspect]
     Dosage: 75 MILLIGRAM/SQ. METER
     Route: 041
     Dates: start: 20110824, end: 20110826
  5. AZACITIDINE [Suspect]
     Dosage: 37.5 MICROGRAM/SQ. METER
  6. AZELNIDIPINE [Concomitant]
     Route: 065
  7. BENIDIPINE HYDROCHLORIDE [Concomitant]
     Route: 065
  8. CEFAZOLIN SODIUM [Concomitant]
     Route: 065
     Dates: start: 20110824
  9. CANDESARTAN CILEXETIL [Concomitant]
     Route: 065
  10. MAGNESIUM OXIDE [Concomitant]
     Route: 065
  11. ISOSORBIDE MONONITRATE [Concomitant]
     Route: 065
  12. POLYMYXIN B SULFATE [Concomitant]
     Route: 065
     Dates: start: 20110824
  13. DOXAZOSIN MESYLATE [Concomitant]
     Route: 065
  14. ALLOPURINOL [Concomitant]
     Route: 065
  15. PYRIDOXAL PHOSPHATE HYDRATE [Concomitant]
     Route: 065
     Dates: start: 20110729

REACTIONS (1)
  - ASCITES [None]
